FAERS Safety Report 4994427-7 (Version None)
Quarter: 2006Q1

REPORT INFORMATION
  Report Type: 
  Country: None (occurrence: None)
  Receive Date: 20060313
  Receipt Date: 20051117
  Transmission Date: 20060701
  Serious: No
  Sender: FDA-Public Use
  Company Number: 2005-BP-19280BP

PATIENT
  Age: 71 Year
  Sex: Male

DRUGS (10)
  1. SPIRIVA [Suspect]
     Indication: ASBESTOSIS
     Dosage: 18 MCG (18 MCG, 1 CAPSULE QD) IH
     Route: 055
     Dates: start: 20040701
  2. SPIRIVA [Suspect]
     Indication: DYSPNOEA
     Dosage: 18 MCG (18 MCG, 1 CAPSULE QD) IH
     Route: 055
     Dates: start: 20040701
  3. SPIRIVA [Suspect]
     Indication: SLEEP APNOEA SYNDROME
     Dosage: 18 MCG (18 MCG, 1 CAPSULE QD) IH
     Route: 055
     Dates: start: 20040701
  4. QUININE SULFATE [Concomitant]
  5. NITROSTAT [Concomitant]
  6. ASCORBIC ACID [Concomitant]
  7. ENTERIC ASA [Concomitant]
  8. UROXATRAL [Concomitant]
  9. METFORMIN [Concomitant]
  10. LISINOPRIL [Concomitant]

REACTIONS (2)
  - HAIR GROWTH ABNORMAL [None]
  - HYPERTRICHOSIS [None]
